FAERS Safety Report 23500135 (Version 1)
Quarter: 2024Q1

REPORT INFORMATION
  Report Type: Spontaneous
  Country: US (occurrence: US)
  Receive Date: 20240208
  Receipt Date: 20240208
  Transmission Date: 20240409
  Serious: No
  Sender: FDA-Public Use
  Company Number: US-TEVA-VS-3149529

PATIENT
  Age: 43 Year
  Sex: Female

DRUGS (1)
  1. AUSTEDO XR [Suspect]
     Active Substance: DEUTETRABENAZINE
     Indication: Product used for unknown indication
     Route: 065
     Dates: end: 20240102

REACTIONS (2)
  - Blepharospasm [Unknown]
  - Affective disorder [Unknown]

NARRATIVE: CASE EVENT DATE: 20231214
